FAERS Safety Report 15678077 (Version 1)
Quarter: 2018Q4

REPORT INFORMATION
  Report Type: Report from Study
  Country: None (occurrence: BR)
  Receive Date: 20181201
  Receipt Date: 20181201
  Transmission Date: 20190205
  Serious: Yes (Hospitalization)
  Sender: FDA-Public Use
  Company Number: BR-ABBVIE-14K-020-1306728-00

PATIENT
  Sex: Male
  Weight: 52 kg

DRUGS (19)
  1. HUMIRA [Suspect]
     Active Substance: ADALIMUMAB
     Indication: ANKYLOSING SPONDYLITIS
     Route: 058
     Dates: start: 20040101
  2. SIMVASTATIN. [Concomitant]
     Active Substance: SIMVASTATIN
     Indication: BLOOD CHOLESTEROL ABNORMAL
     Route: 048
     Dates: start: 2008
  3. HIDROFLUX [Concomitant]
     Indication: DIABETES MELLITUS
     Route: 048
  4. HIDROFLUX [Concomitant]
     Indication: BLOOD PRESSURE ABNORMAL
  5. GLIBENECK [Concomitant]
     Indication: DIABETES MELLITUS
     Route: 048
  6. ENALAMED [Concomitant]
     Indication: BLOOD PRESSURE ABNORMAL
     Route: 048
  7. DIAZEPAM. [Concomitant]
     Active Substance: DIAZEPAM
     Indication: HEAD DISCOMFORT
     Route: 048
  8. AMITRIPTYLINE [Concomitant]
     Active Substance: AMITRIPTYLINE
     Indication: SLEEP DISORDER THERAPY
     Dosage: AT NIGHT
     Route: 048
  9. AMLODIPINE [Concomitant]
     Active Substance: AMLODIPINE BESYLATE
     Indication: HYPERTENSION
     Route: 048
  10. OMEPRAZOLE. [Concomitant]
     Active Substance: OMEPRAZOLE
     Indication: GASTRIC DISORDER
  11. FUROSEMIDE. [Concomitant]
     Active Substance: FUROSEMIDE
     Indication: DYSURIA
     Route: 048
  12. CLEDEPLADEONIDA [Concomitant]
     Indication: BLOOD PRESSURE MEASUREMENT
     Dates: start: 2013
  13. HYDROCHLOROTHIAZIDE. [Concomitant]
     Active Substance: HYDROCHLOROTHIAZIDE
     Indication: PRODUCT USED FOR UNKNOWN INDICATION
     Route: 048
  14. MEVILIP [Concomitant]
     Indication: SEDATIVE THERAPY
     Route: 048
     Dates: start: 2008
  15. LORATADINE. [Concomitant]
     Active Substance: LORATADINE
     Indication: PRURITUS
     Route: 048
     Dates: start: 201505
  16. DIAZEPAM. [Concomitant]
     Active Substance: DIAZEPAM
     Indication: SLEEP DISORDER THERAPY
  17. OMEPRAZOLE. [Concomitant]
     Active Substance: OMEPRAZOLE
     Indication: PROPHYLAXIS
     Route: 048
  18. HUMIRA [Suspect]
     Active Substance: ADALIMUMAB
     Route: 058
     Dates: start: 20040101
  19. AZULFIDINE [Concomitant]
     Active Substance: SULFASALAZINE
     Indication: PRODUCT USED FOR UNKNOWN INDICATION
     Route: 048
     Dates: start: 2008

REACTIONS (10)
  - Dry skin [Recovering/Resolving]
  - Pruritus [Recovering/Resolving]
  - Blood cholesterol increased [Unknown]
  - Injection site mass [Recovered/Resolved]
  - Erythema [Recovered/Resolved]
  - Injection site mass [Recovered/Resolved]
  - Lung disorder [Recovered/Resolved]
  - Renal disorder [Recovered/Resolved]
  - Diabetes mellitus [Recovered/Resolved]
  - Circumstance or information capable of leading to medication error [Unknown]

NARRATIVE: CASE EVENT DATE: 2013
